FAERS Safety Report 8572084-0 (Version None)
Quarter: 2012Q3

REPORT INFORMATION
  Report Type: 
  Country: None (occurrence: None)
  Receive Date: 20120806
  Receipt Date: 20120802
  Transmission Date: 20120928
  Serious: Yes (Other)
  Sender: FDA-Public Use
  Company Number: PHFR2012GB004300

PATIENT

DRUGS (1)
  1. RASILEZ [Suspect]

REACTIONS (1)
  - CEREBROVASCULAR ACCIDENT [None]
